FAERS Safety Report 8148822-8 (Version None)
Quarter: 2012Q1

REPORT INFORMATION
  Report Type: 
  Country: None (occurrence: None)
  Receive Date: 20120218
  Receipt Date: 20110719
  Transmission Date: 20120608
  Serious: No
  Sender: FDA-Public Use
  Company Number: US-ALLERGAN-1109728US

PATIENT
  Age: 40 Year
  Sex: Female

DRUGS (2)
  1. BOTULINUM TOXIN TYPE A [Suspect]
     Indication: MIGRAINE
     Dosage: 155 UNITS, SINGLE
     Route: 030
     Dates: start: 20110701, end: 20110701
  2. MIGRAINE MEDICATIONS [Concomitant]
     Indication: MIGRAINE

REACTIONS (2)
  - MUSCLE TIGHTNESS [None]
  - INJECTION SITE PAIN [None]
